FAERS Safety Report 8723613 (Version 2)
Quarter: 2013Q4

REPORT INFORMATION
  Report Type: Spontaneous
  Country: JP (occurrence: JP)
  Receive Date: 20120815
  Receipt Date: 20131031
  Transmission Date: 20140711
  Serious: Yes (Life-Threatening, Other)
  Sender: FDA-Public Use
  Company Number: JP-009507513-1208JPN004258

PATIENT
  Age: 58 Year
  Sex: Male

DRUGS (5)
  1. GLACTIV [Suspect]
     Indication: TYPE 2 DIABETES MELLITUS
     Dosage: 50 MG, QD
     Route: 048
     Dates: start: 20100710, end: 20120424
  2. ACTOS [Concomitant]
     Dosage: UNK
     Dates: start: 20100710, end: 20120424
  3. NELBIS [Concomitant]
     Dosage: UNK
     Dates: start: 20100710, end: 20120424
  4. AMARYL [Concomitant]
     Dosage: UNK
     Dates: start: 20100710, end: 20120424
  5. LIPITOR [Concomitant]
     Dosage: UNK
     Dates: start: 20100710, end: 20120424

REACTIONS (1)
  - Neoplasm progression [Not Recovered/Not Resolved]
